FAERS Safety Report 5145794-5 (Version None)
Quarter: 2006Q4

REPORT INFORMATION
  Report Type: 
  Country: None (occurrence: None)
  Receive Date: 20061108
  Receipt Date: 20060602
  Transmission Date: 20070319
  Serious: Yes (Hospitalization)
  Sender: FDA-Public Use
  Company Number: ES-SP-2006-01353

PATIENT
  Age: 65 Year
  Sex: Male
  Weight: 73.5 kg

DRUGS (2)
  1. IMMUCYST [Suspect]
     Indication: BLADDER CANCER
     Dosage: SUSPENSION, 50 ML
     Route: 043
     Dates: start: 20051202, end: 20051216
  2. CIPROFLOXACIN [Concomitant]
     Dates: start: 20051209, end: 20051219

REACTIONS (14)
  - ALANINE AMINOTRANSFERASE INCREASED [None]
  - ANOREXIA [None]
  - ASPARTATE AMINOTRANSFERASE INCREASED [None]
  - ASTHENIA [None]
  - CHEST PAIN [None]
  - DISSEMINATED TUBERCULOSIS [None]
  - DYSPNOEA [None]
  - GAMMA-GLUTAMYLTRANSFERASE INCREASED [None]
  - HAEMATURIA [None]
  - INTERSTITIAL LUNG DISEASE [None]
  - LEUKOCYTURIA [None]
  - NEISSERIA INFECTION [None]
  - PYREXIA [None]
  - STREPTOCOCCAL INFECTION [None]
